FAERS Safety Report 13943585 (Version 2)
Quarter: 2017Q3

REPORT INFORMATION
  Report Type: Spontaneous
  Country: GB (occurrence: GB)
  Receive Date: 20170907
  Receipt Date: 20170911
  Transmission Date: 20171128
  Serious: Yes (Hospitalization, Other)
  Sender: FDA-Public Use
  Company Number: GB-SUN PHARMACEUTICAL INDUSTRIES LTD-2017R1-149301

PATIENT
  Age: 82 Year
  Sex: Female

DRUGS (1)
  1. ALENDRONIC ACID [Suspect]
     Active Substance: ALENDRONIC ACID
     Indication: OSTEOPOROSIS
     Route: 048

REACTIONS (3)
  - Drug ineffective [Unknown]
  - Atypical femur fracture [Recovering/Resolving]
  - Patella fracture [Recovering/Resolving]
